FAERS Safety Report 10278262 (Version 12)
Quarter: 2022Q2

REPORT INFORMATION
  Report Type: Spontaneous
  Country: US (occurrence: US)
  Receive Date: 20140704
  Receipt Date: 20220531
  Transmission Date: 20220721
  Serious: Yes (Hospitalization, Other)
  Sender: FDA-Public Use
  Company Number: US-PFIZER INC-2014182745

PATIENT
  Age: 71 Year
  Sex: Female
  Weight: 73 kg

DRUGS (3)
  1. TOVIAZ [Interacting]
     Active Substance: FESOTERODINE FUMARATE
     Indication: Incontinence
     Dosage: 8 MG, AS NEEDED
     Dates: start: 2013
  2. TOVIAZ [Interacting]
     Active Substance: FESOTERODINE FUMARATE
     Indication: Bladder disorder
     Dosage: 8 MG, 1X/DAY
     Dates: start: 2013
  3. MYRBETRIQ [Concomitant]
     Active Substance: MIRABEGRON
     Indication: Bladder disorder
     Dosage: 50 MG, 1X/DAY

REACTIONS (9)
  - Blindness [Unknown]
  - Ocular discomfort [Unknown]
  - Ocular vascular disorder [Unknown]
  - Visual impairment [Unknown]
  - Drug ineffective [Unknown]
  - Off label use [Unknown]
  - Alcohol interaction [Unknown]
  - Cough [Unknown]
  - Throat irritation [Not Recovered/Not Resolved]

NARRATIVE: CASE EVENT DATE: 20200831
